FAERS Safety Report 12681678 (Version 1)
Quarter: 2016Q3

REPORT INFORMATION
  Report Type: Spontaneous
  Country: US (occurrence: US)
  Receive Date: 20160824
  Receipt Date: 20160824
  Transmission Date: 20161109
  Serious: Yes (Other)
  Sender: FDA-Public Use
  Company Number: US-BAUSCH-BL-2016-020248

PATIENT
  Age: 74 Year
  Sex: Female

DRUGS (1)
  1. RENOVA [Suspect]
     Active Substance: TRETINOIN
     Indication: PROPHYLAXIS
     Route: 061
     Dates: start: 2015

REACTIONS (3)
  - Dry skin [Recovered/Resolved]
  - Physical product label issue [Unknown]
  - Precancerous skin lesion [Unknown]
